FAERS Safety Report 6004718-9 (Version None)
Quarter: 2008Q4

REPORT INFORMATION
  Report Type: 
  Country: None (occurrence: None)
  Receive Date: 20081216
  Receipt Date: 20081208
  Transmission Date: 20090506
  Serious: No
  Sender: FDA-Public Use
  Company Number: US-B.I. PHARMACEUTICALS,INC./RIDGEFIELD-2008-BP-18262BP

PATIENT
  Sex: Male

DRUGS (2)
  1. FLOMAX [Suspect]
     Indication: RESIDUAL URINE
     Dosage: .4MG
     Route: 048
     Dates: start: 20081120, end: 20081208
  2. LIPITOR [Concomitant]
     Dates: start: 20030101

REACTIONS (2)
  - MUSCULAR WEAKNESS [None]
  - MYALGIA [None]
